FAERS Safety Report 13665189 (Version 1)
Quarter: 2017Q2

REPORT INFORMATION
  Report Type: Spontaneous
  Country: PH (occurrence: PH)
  Receive Date: 20170619
  Receipt Date: 20170619
  Transmission Date: 20170830
  Serious: Yes (Other)
  Sender: FDA-Public Use
  Company Number: PH-PIRAMAL ENTERPRISES LTD-2017-PEL-000736

PATIENT

DRUGS (9)
  1. SEVOFLURANE 100% V/V VOLATILE LIQUID FOR INHALATION [Suspect]
     Active Substance: SEVOFLURANE
     Indication: INDUCTION AND MAINTENANCE OF ANAESTHESIA
     Dosage: MAINTAINED AT 3 %
     Dates: start: 20170307, end: 20170307
  2. PROPOFOL. [Suspect]
     Active Substance: PROPOFOL
     Indication: GENERAL ANAESTHESIA
     Dosage: 10 MG, UNK
     Route: 065
  3. SEVOFLURANE 100% V/V VOLATILE LIQUID FOR INHALATION [Suspect]
     Active Substance: SEVOFLURANE
     Indication: GENERAL ANAESTHESIA
     Dosage: STARTED AT 8 %
     Dates: start: 20170307, end: 20170307
  4. FENTANYL. [Concomitant]
     Active Substance: FENTANYL
     Indication: SEDATION
     Dosage: 50 ?G, UNK
     Route: 042
     Dates: start: 20170307
  5. KETOROLAC [Concomitant]
     Active Substance: KETOROLAC\KETOROLAC TROMETHAMINE
     Indication: ANALGESIC THERAPY
     Dosage: 3 MG, SINGLE
     Route: 042
     Dates: start: 20170307
  6. LIDOCAINE. [Suspect]
     Active Substance: LIDOCAINE
     Indication: GENERAL ANAESTHESIA
     Dosage: 2 %, UNK
     Route: 065
  7. SEVORANE [Concomitant]
     Active Substance: SEVOFLURANE
     Indication: ANAESTHESIA
     Dosage: 2 %, UNK
     Route: 065
  8. MIDAZOLAM [Concomitant]
     Active Substance: MIDAZOLAM HYDROCHLORIDE
     Indication: PREMEDICATION
     Dosage: 1 MG, SINGLE
     Route: 042
     Dates: start: 20170307
  9. SEVOFLURANE 100% V/V VOLATILE LIQUID FOR INHALATION [Suspect]
     Active Substance: SEVOFLURANE
     Dosage: INCREASED TO 5 %
     Dates: start: 20170307, end: 20170307

REACTIONS (1)
  - Drug ineffective [Recovered/Resolved]

NARRATIVE: CASE EVENT DATE: 20170307
